FAERS Safety Report 14145883 (Version 2)
Quarter: 2017Q4

REPORT INFORMATION
  Report Type: Spontaneous
  Country: US (occurrence: US)
  Receive Date: 20171031
  Receipt Date: 20171211
  Transmission Date: 20180321
  Serious: Yes (Other)
  Sender: FDA-Public Use
  Company Number: US-BAYER-2017-202784

PATIENT
  Age: 87 Year
  Sex: Female
  Weight: 53.97 kg

DRUGS (2)
  1. MIRALAX [Suspect]
     Active Substance: POLYETHYLENE GLYCOL 3350
     Indication: GASTROINTESTINAL DISORDER
     Dosage: 0.5 DF, UNK 1/2 DOSE DOSE
     Route: 048
     Dates: start: 2015, end: 20171013
  2. MIRALAX [Suspect]
     Active Substance: POLYETHYLENE GLYCOL 3350
     Indication: GASTROINTESTINAL MOTILITY DISORDER

REACTIONS (6)
  - Vaginal haemorrhage [Unknown]
  - Underdose [Unknown]
  - Product taste abnormal [Unknown]
  - Haematochezia [Unknown]
  - Product use issue [Unknown]
  - Incorrect drug administration duration [Unknown]

NARRATIVE: CASE EVENT DATE: 2015
